FAERS Safety Report 8222075 (Version 2)
Quarter: 2015Q1

REPORT INFORMATION
  Report Type: Spontaneous
  Country: US (occurrence: US)
  Receive Date: 20111102
  Receipt Date: 20150304
  Transmission Date: 20150721
  Serious: Yes (Other)
  Sender: FDA-Public Use
  Company Number: US-ROCHE-1008589

PATIENT
  Age: 65 Year
  Sex: Female

DRUGS (8)
  1. BONIVA [Suspect]
     Active Substance: IBANDRONATE SODIUM
     Indication: OSTEOPOROSIS
     Route: 048
     Dates: start: 200509, end: 200601
  2. BONIVA [Suspect]
     Active Substance: IBANDRONATE SODIUM
     Indication: OSTEOPENIA
  3. FOSAMAX PLUS D [Suspect]
     Active Substance: ALENDRONATE SODIUM\CHOLECALCIFEROL
     Indication: OSTEOPOROSIS
     Route: 048
     Dates: start: 200802, end: 200901
  4. ALENDRONATE [Suspect]
     Active Substance: ALENDRONATE SODIUM
     Indication: OSTEOPOROSIS
     Route: 048
     Dates: start: 200902, end: 201001
  5. FOSAMAX [Suspect]
     Active Substance: ALENDRONATE SODIUM
     Indication: OSTEOPENIA
     Route: 048
     Dates: start: 200103, end: 200508
  6. BONIVA [Suspect]
     Active Substance: IBANDRONATE SODIUM
     Indication: OSTEITIS DEFORMANS
  7. FOSAMAX [Suspect]
     Active Substance: ALENDRONATE SODIUM
     Indication: OSTEOPOROSIS
     Route: 048
     Dates: start: 199710, end: 200102
  8. FOSAMAX [Suspect]
     Active Substance: ALENDRONATE SODIUM
     Indication: OSTEITIS DEFORMANS
     Route: 048
     Dates: start: 200602, end: 200801

REACTIONS (4)
  - Hand fracture [Unknown]
  - Low turnover osteopathy [Unknown]
  - Femur fracture [Unknown]
  - Anxiety [Unknown]

NARRATIVE: CASE EVENT DATE: 200806
